FAERS Safety Report 6720469-7 (Version None)
Quarter: 2010Q2

REPORT INFORMATION
  Report Type: 
  Country: None (occurrence: None)
  Receive Date: 20100511
  Receipt Date: 20100426
  Transmission Date: 20101027
  Serious: Yes (Other)
  Sender: FDA-Public Use
  Company Number: FR-GENENTECH-301417

PATIENT
  Age: 15 Year
  Sex: Male

DRUGS (4)
  1. XOLAIR [Suspect]
     Indication: DRUG USE FOR UNKNOWN INDICATION
     Dosage: 300 MG, X1
     Route: 065
     Dates: start: 20100423
  2. BUDESONIDE [Concomitant]
     Indication: DRUG USE FOR UNKNOWN INDICATION
  3. SINGULAIR [Concomitant]
     Indication: DRUG USE FOR UNKNOWN INDICATION
  4. ANTIHISTAMINES (UNK INGREDIENTS) [Concomitant]
     Indication: DRUG USE FOR UNKNOWN INDICATION

REACTIONS (5)
  - EYELID OEDEMA [None]
  - FOOD ALLERGY [None]
  - HYPERSENSITIVITY [None]
  - LIP OEDEMA [None]
  - URTICARIA [None]
